FAERS Safety Report 4546134-2 (Version None)
Quarter: 2005Q1

REPORT INFORMATION
  Report Type: 
  Country: None (occurrence: None)
  Receive Date: 20050106
  Receipt Date: 20041227
  Transmission Date: 20050727
  Serious: Yes (Other)
  Sender: FDA-Public Use
  Company Number: US-BRISTOL-MYERS SQUIBB COMPANY-12806972

PATIENT
  Sex: Female

DRUGS (4)
  1. METHOTREXATE [Suspect]
     Indication: BREAST CANCER
     Route: 042
  2. FLUOROURACIL [Interacting]
     Indication: BREAST CANCER
     Route: 042
  3. ISCADOR [Interacting]
     Indication: BREAST CANCER
     Route: 058
  4. GEMCITABINE [Suspect]
     Indication: BREAST CANCER
     Dosage: DAYS 1 AND 8 EVERY 21 DAYS
     Route: 042

REACTIONS (6)
  - DRUG INTERACTION [None]
  - HYPERSENSITIVITY [None]
  - RASH ERYTHEMATOUS [None]
  - SCAR [None]
  - SKIN DISCOLOURATION [None]
  - TYPE IV HYPERSENSITIVITY REACTION [None]
